FAERS Safety Report 7815988-6 (Version None)
Quarter: 2011Q4

REPORT INFORMATION
  Report Type: 
  Country: None (occurrence: None)
  Receive Date: 20111014
  Receipt Date: 20110925
  Transmission Date: 20120403
  Serious: Yes (Other)
  Sender: FDA-Public Use
  Company Number: IL-ROCHE-1000186

PATIENT
  Sex: Female

DRUGS (3)
  1. AVASTIN [Suspect]
     Indication: COLON CANCER METASTATIC
  2. CAPECITABINE [Concomitant]
  3. OXALIPLATIN [Concomitant]

REACTIONS (1)
  - HEPATIC CIRRHOSIS [None]
